FAERS Safety Report 4864688-3 (Version None)
Quarter: 2005Q4

REPORT INFORMATION
  Report Type: 
  Country: None (occurrence: None)
  Receive Date: 20051222
  Receipt Date: 20051214
  Transmission Date: 20060501
  Serious: Yes (Hospitalization)
  Sender: FDA-Public Use
  Company Number: ES-MERCK-0512ESP00015

PATIENT
  Age: 58 Year
  Sex: Male

DRUGS (3)
  1. VIOXX [Suspect]
     Indication: BACK PAIN
     Route: 048
     Dates: start: 20010101, end: 20030101
  2. VIOXX [Suspect]
     Indication: LUMBAR SPINAL STENOSIS
     Route: 048
     Dates: start: 20010101, end: 20030101
  3. BUTYLSCOPOLAMINE BROMIDE [Concomitant]
     Route: 065

REACTIONS (12)
  - ABDOMINAL DISTENSION [None]
  - ABDOMINAL PAIN UPPER [None]
  - ANGINA PECTORIS [None]
  - CARDIAC DISORDER [None]
  - CONJUNCTIVITIS [None]
  - DYSTHYMIC DISORDER [None]
  - FLANK PAIN [None]
  - GASTRITIS [None]
  - HYPOACUSIS [None]
  - INGUINAL HERNIA [None]
  - NAUSEA [None]
  - URTICARIA [None]
